FAERS Safety Report 5861051-3 (Version None)
Quarter: 2008Q3

REPORT INFORMATION
  Report Type: 
  Country: None (occurrence: None)
  Receive Date: 20080827
  Receipt Date: 20080201
  Transmission Date: 20090109
  Serious: No
  Sender: FDA-Public Use
  Company Number: US-ABBOTT-08P-163-0436472-00

PATIENT
  Age: 63 Year
  Sex: Male
  Weight: 74.91 kg

DRUGS (7)
  1. NIASPAN [Suspect]
     Indication: BLOOD CHOLESTEROL INCREASED
     Route: 048
     Dates: start: 20080101
  2. NIASPAN [Suspect]
     Route: 048
     Dates: start: 20030101, end: 20080101
  3. RAMIPRIL [Concomitant]
     Indication: CARDIAC DISORDER
     Route: 048
  4. SIMVASTATIN [Concomitant]
     Indication: BLOOD CHOLESTEROL INCREASED
     Route: 048
  5. FOLTEX [Concomitant]
     Indication: ANTICOAGULANT THERAPY
     Route: 048
  6. FISH OIL [Concomitant]
     Indication: MINERAL SUPPLEMENTATION
     Route: 048
  7. ACE INHIBITOR NOS [Concomitant]
     Indication: CARDIAC DISORDER
     Route: 048

REACTIONS (5)
  - COUGH [None]
  - NASOPHARYNGITIS [None]
  - PRURITUS [None]
  - PYREXIA [None]
  - RHINORRHOEA [None]
